FAERS Safety Report 6307374-5 (Version None)
Quarter: 2009Q3

REPORT INFORMATION
  Report Type: 
  Country: None (occurrence: None)
  Receive Date: 20090813
  Receipt Date: 20090806
  Transmission Date: 20100115
  Serious: No
  Sender: FDA-Public Use
  Company Number: US-JNJFOC-20090802461

PATIENT
  Sex: Female
  Weight: 60.78 kg

DRUGS (3)
  1. FENTANYL TRANSDERMAL SYSTEM [Suspect]
     Indication: PANCREATITIS CHRONIC
     Dosage: 1 PATCH OF 50 UG/HR AND 2 PATCHES OF 100 UG/HR
     Route: 062
  2. SYNTHROID [Concomitant]
     Indication: THYROID DISORDER
     Route: 048
  3. ASPIRIN [Concomitant]
     Indication: CARDIAC DISORDER
     Route: 048

REACTIONS (4)
  - ASTHENIA [None]
  - BLOOD CHOLESTEROL INCREASED [None]
  - INAPPROPRIATE SCHEDULE OF DRUG ADMINISTRATION [None]
  - NIGHT SWEATS [None]
